FAERS Safety Report 7926420 (Version 4)
Quarter: 2013Q2

REPORT INFORMATION
  Report Type: Spontaneous
  Country: US (occurrence: US)
  Receive Date: 20110502
  Receipt Date: 20130501
  Transmission Date: 20140414
  Serious: No
  Sender: FDA-Public Use
  Company Number: US-ASTRAZENECA-2010SE55353

PATIENT
  Age: 56 Year
  Sex: Female

DRUGS (2)
  1. NEXIUM [Suspect]
     Route: 048
  2. CELEXA [Interacting]

REACTIONS (6)
  - Drug interaction [Unknown]
  - Inflammation [Unknown]
  - Adverse event [Unknown]
  - Pain [Unknown]
  - Drug ineffective [Unknown]
  - Drug dose omission [Unknown]
